FAERS Safety Report 9421126 (Version 1)
Quarter: 2013Q3

REPORT INFORMATION
  Report Type: Spontaneous
  Country: IT (occurrence: IT)
  Receive Date: 20130725
  Receipt Date: 20130725
  Transmission Date: 20140515
  Serious: Yes (Other)
  Sender: FDA-Public Use
  Company Number: PHHY2013IT077370

PATIENT
  Sex: Female

DRUGS (2)
  1. NEBIVOLOL [Suspect]
  2. HYDROCHLOROTHIAZIDE [Suspect]

REACTIONS (3)
  - Head injury [Recovering/Resolving]
  - Presyncope [Recovering/Resolving]
  - Hypotension [Recovering/Resolving]
